FAERS Safety Report 4933477-3 (Version None)
Quarter: 2006Q1

REPORT INFORMATION
  Report Type: 
  Country: None (occurrence: None)
  Receive Date: 20060106
  Receipt Date: 20050809
  Transmission Date: 20060701
  Serious: No
  Sender: FDA-Public Use
  Company Number: 200511604BWH

PATIENT
  Age: 65 Year
  Sex: Male

DRUGS (3)
  1. LEVITRA [Suspect]
     Indication: ERECTILE DYSFUNCTION
     Dosage: 20 MG, OW, ORAL
     Route: 048
     Dates: start: 20050501
  2. ASPIRIN [Concomitant]
  3. VIAGRA [Concomitant]

REACTIONS (5)
  - DIZZINESS [None]
  - EYE PRURITUS [None]
  - PALPITATIONS [None]
  - PHOTOPHOBIA [None]
  - VISION BLURRED [None]
